FAERS Safety Report 5967679-4 (Version None)
Quarter: 2008Q4

REPORT INFORMATION
  Report Type: 
  Country: None (occurrence: None)
  Receive Date: 20081126
  Receipt Date: 20081121
  Transmission Date: 20090506
  Serious: Yes (Death, Hospitalization)
  Sender: FDA-Public Use
  Company Number: PHHY2008JP29177

PATIENT
  Sex: Male

DRUGS (3)
  1. VOLTAREN [Suspect]
     Route: 048
  2. ASPIRIN [Suspect]
     Route: 048
  3. PLAVIX [Suspect]
     Dosage: UNK
     Route: 048

REACTIONS (5)
  - CEREBRAL INFARCTION [None]
  - EPISTAXIS [None]
  - MULTI-ORGAN FAILURE [None]
  - MYOCARDIAL INFARCTION [None]
  - SUBDURAL HAEMORRHAGE [None]
